FAERS Safety Report 4551761-2 (Version None)
Quarter: 2005Q1

REPORT INFORMATION
  Report Type: 
  Country: None (occurrence: None)
  Receive Date: 20050113
  Receipt Date: 20050110
  Transmission Date: 20050727
  Serious: Yes (Other)
  Sender: FDA-Public Use
  Company Number: US-GLAXOSMITHKLINE-A0540078A

PATIENT
  Age: 39 Year
  Sex: Female

DRUGS (5)
  1. LAMICTAL [Suspect]
     Indication: BIPOLAR DISORDER
     Route: 048
     Dates: start: 20040401
  2. VALPROATE [Suspect]
  3. SEROQUEL [Concomitant]
  4. NEXIUM [Concomitant]
  5. PHENERGAN [Concomitant]

REACTIONS (2)
  - MANIA [None]
  - TREATMENT NONCOMPLIANCE [None]
